FAERS Safety Report 21595019 (Version 3)
Quarter: 2023Q2

REPORT INFORMATION
  Report Type: Spontaneous
  Country: US (occurrence: US)
  Receive Date: 20221115
  Receipt Date: 20230522
  Transmission Date: 20230721
  Serious: Yes (Other)
  Sender: FDA-Public Use
  Company Number: US-PFIZER INC-PV202200102516

PATIENT
  Age: 38 Year
  Sex: Female

DRUGS (1)
  1. NYVEPRIA [Suspect]
     Active Substance: PEGFILGRASTIM-APGF
     Dosage: EVERY 2 WEEKS

REACTIONS (1)
  - Adenocarcinoma gastric [Unknown]
